FAERS Safety Report 9630680 (Version 1)
Quarter: 2013Q4

REPORT INFORMATION
  Report Type: Spontaneous
  Country: None (occurrence: None)
  Receive Date: 20131011
  Receipt Date: 20131011
  Transmission Date: 20140711
  Serious: Yes (Other)
  Sender: FDA-Public Use
  Company Number: AUR-APL-2013-08171

PATIENT
  Age: 54 Year
  Sex: Male

DRUGS (4)
  1. RIBAVIRIN [Suspect]
     Indication: HEPATITIS C
     Dosage: (2 IN 1 D)
     Route: 048
     Dates: start: 20121122
  2. TELAPREVIR [Suspect]
     Indication: HEPATITIS C
     Dosage: (750 MG, 3 IN 1 D)
     Route: 048
     Dates: start: 20121122, end: 20130214
  3. PEGINTERFERON ALFA-2B [Suspect]
     Indication: HEPATITIS C
     Dosage: (1 IN 1WK)
     Route: 058
     Dates: start: 20121122
  4. CHLORPHENAMINE [Suspect]
     Indication: PRURITUS
     Route: 048

REACTIONS (3)
  - Rash pruritic [None]
  - Rash erythematous [None]
  - Blister [None]
